FAERS Safety Report 4362828-6 (Version None)
Quarter: 2004Q2

REPORT INFORMATION
  Report Type: 
  Country: None (occurrence: None)
  Receive Date: 20040524
  Receipt Date: 20040512
  Transmission Date: 20050107
  Serious: Yes (Death, Hospitalization, Other)
  Sender: FDA-Public Use
  Company Number: CA-JNJFOC-20040503002

PATIENT
  Age: 54 Year
  Sex: Female

DRUGS (2)
  1. TOPAMAX [Suspect]
     Indication: MIGRAINE PROPHYLAXIS
     Route: 049
  2. MAXALT [Suspect]
     Indication: MIGRAINE

REACTIONS (8)
  - BRAIN DEATH [None]
  - CARDIAC ARREST [None]
  - CARDIAC DISORDER [None]
  - CARDIOMYOPATHY [None]
  - CIRCULATORY COLLAPSE [None]
  - DRUG INTERACTION [None]
  - MEDICATION ERROR [None]
  - VENTRICULAR FIBRILLATION [None]
